FAERS Safety Report 13661383 (Version 1)
Quarter: 2017Q2

REPORT INFORMATION
  Report Type: Spontaneous
  Country: US (occurrence: US)
  Receive Date: 20170616
  Receipt Date: 20170616
  Transmission Date: 20170830
  Serious: No
  Sender: FDA-Public Use
  Company Number: US-US WORLDMEDS, LLC-USW201611-000781

PATIENT
  Sex: Female

DRUGS (8)
  1. NEUPRO [Concomitant]
     Active Substance: ROTIGOTINE
  2. APOKYN [Suspect]
     Active Substance: APOMORPHINE HYDROCHLORIDE
  3. RYTARY [Concomitant]
     Active Substance: CARBIDOPA\LEVODOPA
     Dates: start: 201505
  4. APOKYN [Suspect]
     Active Substance: APOMORPHINE HYDROCHLORIDE
     Dates: start: 20160903
  5. AZILECT [Concomitant]
     Active Substance: RASAGILINE MESYLATE
     Dates: start: 2008
  6. TIGAN [Concomitant]
     Active Substance: TRIMETHOBENZAMIDE HYDROCHLORIDE
  7. APOKYN [Suspect]
     Active Substance: APOMORPHINE HYDROCHLORIDE
     Indication: PARKINSON^S DISEASE
  8. BENZEPRIL [Concomitant]

REACTIONS (5)
  - Musculoskeletal stiffness [Unknown]
  - Nausea [Unknown]
  - Fatigue [Unknown]
  - Dyspnoea [Unknown]
  - Hot flush [Unknown]
